FAERS Safety Report 9626840 (Version 7)
Quarter: 2014Q1

REPORT INFORMATION
  Report Type: Spontaneous
  Country: US (occurrence: US)
  Receive Date: 20131016
  Receipt Date: 20140326
  Transmission Date: 20141002
  Serious: Yes (Other)
  Sender: FDA-Public Use
  Company Number: US-PFIZER INC-2013296416

PATIENT
  Age: 88 Year
  Sex: Female

DRUGS (2)
  1. LIPITOR [Suspect]
     Dosage: 40 MG, UNK
  2. LYRICA [Suspect]
     Dosage: UNK

REACTIONS (4)
  - Deafness [Unknown]
  - Renal disorder [Unknown]
  - Dry skin [Unknown]
  - Blood cholesterol increased [Unknown]
